FAERS Safety Report 26143984 (Version 1)
Quarter: 2025Q4

REPORT INFORMATION
  Report Type: Spontaneous
  Country: GB (occurrence: GB)
  Receive Date: 20251211
  Receipt Date: 20251211
  Transmission Date: 20260117
  Serious: Yes (Other)
  Sender: TEVA
  Company Number: None

PATIENT
  Age: 71 Year
  Sex: Female
  Weight: 59 kg

DRUGS (2)
  1. LAMOTRIGINE [Suspect]
     Active Substance: LAMOTRIGINE
     Indication: Adverse drug reaction
     Dosage: TAPERING START TO FULL DOSE OF 75MG TWICE DAILY BY 2025-06-10
     Route: 065
     Dates: start: 20250227, end: 20250924
  2. VALPROATE SODIUM [Concomitant]
     Active Substance: VALPROATE SODIUM
     Indication: Adverse drug reaction
     Dates: start: 1995, end: 20250610

REACTIONS (7)
  - Drug-induced liver injury [Recovering/Resolving]
  - Irritability [Recovered/Resolved]
  - Abnormal dreams [Recovered/Resolved]
  - Weight decreased [Recovering/Resolving]
  - Diplopia [Not Recovered/Not Resolved]
  - Blepharitis [Recovered/Resolved]
  - Rash [Recovered/Resolved]

NARRATIVE: CASE EVENT DATE: 20250301
